FAERS Safety Report 13781091 (Version 1)
Quarter: 2017Q3

REPORT INFORMATION
  Report Type: Spontaneous
  Country: US (occurrence: US)
  Receive Date: 20170723
  Receipt Date: 20170723
  Transmission Date: 20171127
  Serious: Yes (Other)
  Sender: FDA-Public Use
  Company Number: None

PATIENT
  Age: 67 Year
  Sex: Female
  Weight: 92.7 kg

DRUGS (11)
  1. CLOPIDOGREL [Concomitant]
     Active Substance: CLOPIDOGREL BISULFATE
  2. FARXIGA [Suspect]
     Active Substance: DAPAGLIFLOZIN PROPANEDIOL
     Indication: GLYCOSYLATED HAEMOGLOBIN INCREASED
     Dosage: ?          OTHER STRENGTH:MG;QUANTITY:30 TABLET(S);?DAILY ORAL
     Route: 048
     Dates: start: 20170701, end: 20170721
  3. BLOOD PRESSURE KIT [Concomitant]
  4. TRESIBA [Concomitant]
     Active Substance: INSULIN DEGLUDEC
  5. HYDRALAZINE [Concomitant]
     Active Substance: HYDRALAZINE HYDROCHLORIDE
  6. SPIRIVA RESPIMAT [Concomitant]
     Active Substance: TIOTROPIUM BROMIDE
  7. ISOSORB MONO ER [Concomitant]
  8. GLIPIZIDE. [Concomitant]
     Active Substance: GLIPIZIDE
  9. BLOOD SUGAR KIT [Concomitant]
  10. METOPROLOL ER [Concomitant]
     Active Substance: METOPROLOL SUCCINATE
  11. LIOTHYRONINE [Concomitant]
     Active Substance: LIOTHYRONINE

REACTIONS (5)
  - Rash generalised [None]
  - Heart rate increased [None]
  - Peripheral swelling [None]
  - Dysuria [None]
  - Joint swelling [None]

NARRATIVE: CASE EVENT DATE: 20170717
